FAERS Safety Report 4431357-3 (Version None)
Quarter: 2004Q3

REPORT INFORMATION
  Report Type: 
  Country: None (occurrence: None)
  Receive Date: 20040817
  Receipt Date: 20040809
  Transmission Date: 20050211
  Serious: Yes (Death)
  Sender: FDA-Public Use
  Company Number: 2004227837MX

PATIENT
  Age: 23 Year
  Sex: Female

DRUGS (2)
  1. GENOTROPIN [Suspect]
     Dosage: 0.9 MG, QD, SUBCUTANEOUS
     Route: 058
     Dates: start: 20021118
  2. VITAMINERAL (VITAMINS NOS) [Concomitant]

REACTIONS (1)
  - ANOREXIA NERVOSA [None]
